FAERS Safety Report 8207429-4 (Version None)
Quarter: 2012Q1

REPORT INFORMATION
  Report Type: 
  Country: None (occurrence: None)
  Receive Date: 20120314
  Receipt Date: 20120307
  Transmission Date: 20120608
  Serious: Yes (Death, Other)
  Sender: FDA-Public Use
  Company Number: JP-ASTELLAS-2012JP001986

PATIENT
  Sex: Female

DRUGS (7)
  1. METHOTREXATE [Concomitant]
     Indication: PROPHYLAXIS AGAINST GRAFT VERSUS HOST DISEASE
     Route: 065
  2. PROGRAF [Suspect]
     Indication: PROPHYLAXIS AGAINST GRAFT VERSUS HOST DISEASE
     Route: 065
  3. FUNGUARD [Concomitant]
     Route: 065
  4. ITRACONAZOLE [Concomitant]
     Route: 065
  5. FLUCONAZOLE [Concomitant]
     Dosage: 200 MG, UNKNOWN/D
     Route: 065
  6. VORICONAZOLE [Concomitant]
     Route: 065
  7. CYCLOPHOSPHAMIDE [Concomitant]
     Indication: BONE MARROW CONDITIONING REGIMEN
     Route: 065

REACTIONS (4)
  - THROMBOTIC MICROANGIOPATHY [None]
  - GRAFT VERSUS HOST DISEASE [None]
  - DRUG INEFFECTIVE [None]
  - TRICHOSPORON INFECTION [None]
